FAERS Safety Report 7876304-7 (Version None)
Quarter: 2011Q4

REPORT INFORMATION
  Report Type: 
  Country: None (occurrence: None)
  Receive Date: 20111031
  Receipt Date: 20111026
  Transmission Date: 20120403
  Serious: Yes (Disabling)
  Sender: FDA-Public Use
  Company Number: US-MERCK-1107USA02915

PATIENT
  Age: 71 Year
  Sex: Female

DRUGS (1)
  1. FOSAMAX [Suspect]
     Indication: OSTEOPOROSIS
     Route: 048

REACTIONS (13)
  - JAW DISORDER [None]
  - BONE DISORDER [None]
  - HYPERTENSION [None]
  - OSTEORADIONECROSIS [None]
  - OSTEOMYELITIS [None]
  - GINGIVAL DISORDER [None]
  - HEAD INJURY [None]
  - OSTEONECROSIS OF JAW [None]
  - ORAL INFECTION [None]
  - ABSCESS [None]
  - IMPAIRED HEALING [None]
  - EXOSTOSIS [None]
  - ORAL DISORDER [None]
